FAERS Safety Report 16857888 (Version 1)
Quarter: 2019Q3

REPORT INFORMATION
  Report Type: Report from Study
  Country: US (occurrence: US)
  Receive Date: 20190926
  Receipt Date: 20190926
  Transmission Date: 20191005
  Serious: Yes (Hospitalization)
  Sender: FDA-Public Use
  Company Number: US-GILEAD-2019-0430447

PATIENT
  Sex: Female

DRUGS (3)
  1. BUDESONIDE. [Concomitant]
     Active Substance: BUDESONIDE
     Dates: start: 20181005
  2. BROVANA [Concomitant]
     Active Substance: ARFORMOTEROL TARTRATE
     Dates: start: 20181005
  3. AZTREONAM LYSINE [Suspect]
     Active Substance: AZTREONAM LYSINE
     Indication: CYSTIC FIBROSIS
     Dosage: 1 VIAL TID 28 DAYS ON/OFF

REACTIONS (3)
  - Pruritus [Not Recovered/Not Resolved]
  - Lung disorder [Unknown]
  - Pyrexia [Unknown]
